FAERS Safety Report 14948951 (Version 2)
Quarter: 2018Q2

REPORT INFORMATION
  Report Type: Spontaneous
  Country: US (occurrence: US)
  Receive Date: 20180529
  Receipt Date: 20180625
  Transmission Date: 20180711
  Serious: No
  Sender: FDA-Public Use
  Company Number: US-GLAXOSMITHKLINE-US2018091200

PATIENT
  Age: 57 Year
  Sex: Male
  Weight: 89 kg

DRUGS (1)
  1. EQUATE NICOTINE [Suspect]
     Active Substance: NICOTINE
     Indication: PRODUCT USED FOR UNKNOWN INDICATION
     Dosage: 14 MG, UNK (3 TIMES)
     Dates: start: 20180505, end: 20180517

REACTIONS (1)
  - Rash generalised [Unknown]
